FAERS Safety Report 4595522-7 (Version None)
Quarter: 2005Q1

REPORT INFORMATION
  Report Type: 
  Country: None (occurrence: None)
  Receive Date: 20050224
  Receipt Date: 20050207
  Transmission Date: 20050727
  Serious: Yes (Hospitalization)
  Sender: FDA-Public Use
  Company Number: US_0402101042

PATIENT
  Age: 86 Year
  Sex: Female
  Weight: 61 kg

DRUGS (8)
  1. FORTEO [Suspect]
     Indication: OSTEOPOROSIS
     Dosage: 20 UG/1 DAY
     Dates: start: 20030201
  2. LEVOXYL [Concomitant]
  3. NEXIUM [Concomitant]
  4. POTASSIUM CHLORIDE [Concomitant]
  5. TEMAZEPAM [Concomitant]
  6. CITRACAL (CALCIUM CITRATE) [Concomitant]
  7. MULTIVITAMIN [Concomitant]
  8. XANAX (ALPRAZOLAM DUM) [Concomitant]

REACTIONS (12)
  - CYSTITIS [None]
  - DIZZINESS [None]
  - DRUG HYPERSENSITIVITY [None]
  - ELECTROLYTE IMBALANCE [None]
  - FEELING ABNORMAL [None]
  - HEART RATE INCREASED [None]
  - MACULAR DEGENERATION [None]
  - NAUSEA [None]
  - ORTHOSTATIC HYPOTENSION [None]
  - PAIN [None]
  - PATHOGEN RESISTANCE [None]
  - PHARMACEUTICAL PRODUCT COMPLAINT [None]
